FAERS Safety Report 21047263 (Version 2)
Quarter: 2022Q3

REPORT INFORMATION
  Report Type: Spontaneous
  Country: US (occurrence: US)
  Receive Date: 20220706
  Receipt Date: 20220712
  Transmission Date: 20221026
  Serious: No
  Sender: FDA-Public Use
  Company Number: US-PFIZER INC-PV202200004268

PATIENT
  Age: 42 Year
  Sex: Male

DRUGS (2)
  1. BOSULIF [Interacting]
     Active Substance: BOSUTINIB MONOHYDRATE
     Dosage: 500 MG
  2. PANTOPRAZOLE [Interacting]
     Active Substance: PANTOPRAZOLE

REACTIONS (1)
  - Drug interaction [Unknown]
